FAERS Safety Report 8035483-1 (Version None)
Quarter: 2012Q1

REPORT INFORMATION
  Report Type: 
  Country: None (occurrence: None)
  Receive Date: 20120110
  Receipt Date: 20120110
  Transmission Date: 20120608
  Serious: Yes (Hospitalization)
  Sender: FDA-Public Use
  Company Number: None

PATIENT
  Sex: Male
  Weight: 96.27 kg

DRUGS (1)
  1. INTRON A [Suspect]
     Dosage: 40 MU
     Dates: end: 20111228

REACTIONS (2)
  - HAEMOGLOBIN DECREASED [None]
  - DYSPEPSIA [None]
